FAERS Safety Report 8934643 (Version 1)
Quarter: 2012Q4

REPORT INFORMATION
  Report Type: 
  Country: IT (occurrence: IT)
  Receive Date: 20121129
  Receipt Date: 20121129
  Transmission Date: 20130627
  Serious: Yes (Other)
  Sender: FDA-Public Use
  Company Number: IT-NAPPMUNDI-GBR-2012-0011569

PATIENT
  Age: 80 Year
  Sex: Male

DRUGS (8)
  1. OXYCONTIN [Suspect]
     Indication: PRODUCT USED FOR UNKNOWN INDICATION
     Dosage: UNK
     Route: 048
     Dates: start: 20120913, end: 20120915
  2. SINTROM [Suspect]
     Indication: ATRIAL FIBRILLATION
     Dosage: 13 mg, weekly
     Route: 048
     Dates: start: 20091223, end: 20120921
  3. LEVOXACIN [Suspect]
     Dosage: UNK
     Route: 065
     Dates: start: 20120915, end: 20120922
  4. BISOPROLOL FUMARATE [Concomitant]
     Route: 048
  5. ROSUVASTATIN CALCIUM [Concomitant]
     Route: 048
  6. VERCITE [Concomitant]
  7. TRIATEC                            /00885601/ [Concomitant]
     Route: 048
  8. CARDIOASPIRIN [Concomitant]
     Route: 048

REACTIONS (1)
  - International normalised ratio increased [Recovered/Resolved]
